FAERS Safety Report 17831159 (Version 1)
Quarter: 2020Q2

REPORT INFORMATION
  Report Type: Other
  Country: US (occurrence: US)
  Receive Date: 20200527
  Receipt Date: 20200527
  Transmission Date: 20200714
  Serious: Yes (Hospitalization)
  Sender: FDA-Public Use
  Company Number: US-BIOVITRUM-2019US0983

PATIENT
  Sex: Male

DRUGS (1)
  1. KINERET [Suspect]
     Active Substance: ANAKINRA
     Indication: GRANULOMATOSIS WITH POLYANGIITIS
     Route: 058
     Dates: end: 20190423

REACTIONS (3)
  - Hospitalisation [Unknown]
  - Off label use [Unknown]
  - General physical health deterioration [Unknown]
